FAERS Safety Report 8116600-1 (Version None)
Quarter: 2012Q1

REPORT INFORMATION
  Report Type: 
  Country: None (occurrence: None)
  Receive Date: 20120206
  Receipt Date: 20120202
  Transmission Date: 20120608
  Serious: Yes (Death)
  Sender: FDA-Public Use
  Company Number: US-SHIRE-ALL1-2012-00620

PATIENT
  Sex: Female
  Weight: 81.633 kg

DRUGS (1)
  1. LIALDA [Suspect]
     Indication: COLITIS
     Dosage: 4.8 G,(1.2 G 4 TABLETS) 1X/DAY:QD
     Route: 048

REACTIONS (1)
  - LUNG INFILTRATION [None]
